FAERS Safety Report 21233200 (Version 2)
Quarter: 2022Q3

REPORT INFORMATION
  Report Type: Spontaneous
  Country: US (occurrence: US)
  Receive Date: 20220819
  Receipt Date: 20220908
  Transmission Date: 20221026
  Serious: No
  Sender: FDA-Public Use
  Company Number: US-PFIZER INC-202201065076

PATIENT
  Age: 49 Year
  Sex: Female
  Weight: 123.3 kg

DRUGS (6)
  1. PAXLOVID [Suspect]
     Active Substance: NIRMATRELVIR\RITONAVIR
     Indication: COVID-19 treatment
     Dosage: [PF-07321332 300 MG]/[RITONAVIR 100 MG]; 2X/DAY
     Dates: start: 20220809
  2. CYCLOBENZAPRINE [Concomitant]
     Active Substance: CYCLOBENZAPRINE
     Dosage: UNK
  3. HYDROXYZINE HYDROCHLORIDE [Concomitant]
     Active Substance: HYDROXYZINE HYDROCHLORIDE
     Dosage: UNK
  4. ALEGRA [Concomitant]
     Dosage: UNK
  5. CHOLECALCIFEROL [Concomitant]
     Active Substance: CHOLECALCIFEROL
     Dosage: UNK
  6. MIRTAZAPINE [Concomitant]
     Active Substance: MIRTAZAPINE
     Dosage: UNK

REACTIONS (1)
  - Therapeutic response unexpected [Unknown]
